FAERS Safety Report 8018947-6 (Version None)
Quarter: 2012Q1

REPORT INFORMATION
  Report Type: 
  Country: None (occurrence: None)
  Receive Date: 20120103
  Receipt Date: 20111229
  Transmission Date: 20120608
  Serious: No
  Sender: FDA-Public Use
  Company Number: US-PFIZER INC-2011316921

PATIENT
  Sex: Male

DRUGS (3)
  1. LYRICA [Suspect]
     Dosage: 100 MG, 1X/DAY
  2. LYRICA [Suspect]
     Dosage: 50 MG, 1X/DAY
  3. LYRICA [Suspect]
     Dosage: 100 MG, 2X/DAY

REACTIONS (4)
  - SOMNOLENCE [None]
  - EUPHORIC MOOD [None]
  - FEELING DRUNK [None]
  - COORDINATION ABNORMAL [None]
